FAERS Safety Report 6555904-0 (Version None)
Quarter: 2010Q1

REPORT INFORMATION
  Report Type: 
  Country: None (occurrence: None)
  Receive Date: 20100128
  Receipt Date: 20100119
  Transmission Date: 20100710
  Serious: Yes (Hospitalization)
  Sender: FDA-Public Use
  Company Number: DE-JNJFOC-20080602303

PATIENT
  Sex: Female
  Weight: 64 kg

DRUGS (18)
  1. PREZISTA [Suspect]
     Indication: HIV INFECTION
     Route: 048
  2. PREZISTA [Suspect]
     Route: 048
  3. VICRIVIROC [Suspect]
     Indication: HIV INFECTION
     Route: 048
  4. TRUVADA [Suspect]
     Indication: HIV INFECTION
     Route: 048
  5. TRUVADA [Suspect]
     Route: 048
  6. TRUVADA [Suspect]
     Route: 048
  7. ISENTRESS [Suspect]
     Indication: HIV INFECTION
     Route: 048
  8. ISENTRESS [Suspect]
     Route: 048
  9. RITONAVIR [Suspect]
     Indication: HIV INFECTION
  10. RITONAVIR [Suspect]
  11. PARACETAMOL [Concomitant]
     Indication: MYALGIA
     Route: 048
  12. PARACETAMOL [Concomitant]
     Indication: HEADACHE
     Route: 048
  13. NOVAMINSULFON [Concomitant]
     Indication: MYALGIA
     Route: 048
  14. NOVAMINSULFON [Concomitant]
     Indication: HEADACHE
     Route: 048
  15. THOMAPYRIN [Concomitant]
     Indication: MYALGIA
     Route: 048
  16. THOMAPYRIN [Concomitant]
     Indication: HEADACHE
     Route: 048
  17. POTASSIUM CHLORIDE [Concomitant]
     Indication: HYPOKALAEMIA
  18. ENALAPRIL MALEATE [Concomitant]

REACTIONS (3)
  - ANAEMIA HAEMOLYTIC AUTOIMMUNE [None]
  - HEPATITIS TOXIC [None]
  - SEPSIS [None]
